FAERS Safety Report 5249800-9 (Version None)
Quarter: 2007Q1

REPORT INFORMATION
  Report Type: 
  Country: None (occurrence: None)
  Receive Date: 20070228
  Receipt Date: 20070216
  Transmission Date: 20070707
  Serious: Yes (Hospitalization)
  Sender: FDA-Public Use
  Company Number: 2007SE00744

PATIENT
  Age: 48 Year
  Sex: Female

DRUGS (4)
  1. SEROQUEL [Suspect]
     Indication: SCHIZOAFFECTIVE DISORDER
     Dosage: 200 MG IN THE MORNING+ 200 MG AT NOON+ 400 MG IN THE EVENING
     Route: 048
     Dates: start: 20050101, end: 20061030
  2. DEPAKENE [Concomitant]
     Route: 048
  3. CISORDINOLI DEKANOATE [Concomitant]
  4. MIRTAZEPINUM [Concomitant]

REACTIONS (2)
  - DRUG INEFFECTIVE [None]
  - SCHIZOAFFECTIVE DISORDER [None]
